FAERS Safety Report 11149185 (Version 1)
Quarter: 2015Q2

REPORT INFORMATION
  Report Type: Report from Study
  Country: US (occurrence: US)
  Receive Date: 20150529
  Receipt Date: 20150529
  Transmission Date: 20150821
  Serious: Yes (Other)
  Sender: FDA-Public Use
  Company Number: US-ABBVIE-15P-163-1397844-00

PATIENT
  Sex: Female

DRUGS (1)
  1. HUMIRA [Suspect]
     Active Substance: ADALIMUMAB
     Indication: PSORIASIS
     Route: 065
     Dates: start: 201504, end: 20150522

REACTIONS (5)
  - Renal impairment [Unknown]
  - Systemic lupus erythematosus [Recovered/Resolved]
  - Hepatomegaly [Unknown]
  - Splenomegaly [Unknown]
  - Alopecia [Unknown]

NARRATIVE: CASE EVENT DATE: 2015
